FAERS Safety Report 9094637 (Version 1)
Quarter: 2013Q1

REPORT INFORMATION
  Report Type: Spontaneous
  Country: NO (occurrence: NO)
  Receive Date: 20130204
  Receipt Date: 20130204
  Transmission Date: 20140127
  Serious: Yes (Hospitalization, Other)
  Sender: FDA-Public Use
  Company Number: NO-AMGEN-NORSP2013006964

PATIENT
  Age: 37 Year
  Sex: Female

DRUGS (2)
  1. ENBREL [Suspect]
     Indication: RHEUMATOID ARTHRITIS
     Dosage: 25 MG, 2X/WEEK
     Dates: start: 20110920
  2. PLAQUENIL                          /00072602/ [Concomitant]
     Dosage: 200 MG, 2X/DAY
     Route: 048
     Dates: start: 20100906

REACTIONS (1)
  - Appendicitis perforated [Recovered/Resolved]
